FAERS Safety Report 4630858-2 (Version None)
Quarter: 2005Q2

REPORT INFORMATION
  Report Type: 
  Country: None (occurrence: None)
  Receive Date: 20050406
  Receipt Date: 20050328
  Transmission Date: 20051028
  Serious: Yes (Hospitalization)
  Sender: FDA-Public Use
  Company Number: 2005051991

PATIENT
  Age: 68 Year
  Sex: Male
  Weight: 58.0604 kg

DRUGS (1)
  1. NICOTROL [Suspect]
     Indication: EMPHYSEMA
     Dosage: 7 CARTRIDGES DAILY, INHLATION
     Route: 055
     Dates: start: 19990101

REACTIONS (1)
  - PNEUMONIA [None]
